FAERS Safety Report 6870712-9 (Version None)
Quarter: 2010Q3

REPORT INFORMATION
  Report Type: 
  Country: None (occurrence: None)
  Receive Date: 20100723
  Receipt Date: 20100720
  Transmission Date: 20110219
  Serious: Yes (Hospitalization, Other)
  Sender: FDA-Public Use
  Company Number: US-ASTRAZENECA-2006UW07720

PATIENT
  Age: 14802 Day
  Sex: Female
  Weight: 64.4 kg

DRUGS (29)
  1. SEROQUEL [Suspect]
     Indication: DEPRESSION
     Route: 048
     Dates: start: 20030901, end: 20050301
  2. SEROQUEL [Suspect]
     Indication: INSOMNIA
     Route: 048
     Dates: start: 20030901, end: 20050301
  3. SEROQUEL [Suspect]
     Indication: ANXIETY
     Route: 048
     Dates: start: 20030901, end: 20050301
  4. SEROQUEL [Suspect]
     Route: 048
  5. SEROQUEL [Suspect]
     Route: 048
  6. SEROQUEL [Suspect]
     Route: 048
  7. SEROQUEL [Suspect]
     Dosage: 25 - 200 MG
     Route: 048
  8. SEROQUEL [Suspect]
     Dosage: 25 - 200 MG
     Route: 048
  9. SEROQUEL [Suspect]
     Dosage: 25 - 200 MG
     Route: 048
  10. SEROQUEL [Suspect]
     Dosage: 100-200 MG
     Route: 048
     Dates: start: 20040202, end: 20050310
  11. SEROQUEL [Suspect]
     Dosage: 100-200 MG
     Route: 048
     Dates: start: 20040202, end: 20050310
  12. SEROQUEL [Suspect]
     Dosage: 100-200 MG
     Route: 048
     Dates: start: 20040202, end: 20050310
  13. EFFEXOR [Concomitant]
     Route: 048
  14. MORPHINE SULFATE [Concomitant]
  15. PAXIL [Concomitant]
  16. ATIVAN [Concomitant]
  17. VICODIN [Concomitant]
  18. LEXAPRO [Concomitant]
  19. NICOTINE [Concomitant]
  20. TRAZODONE [Concomitant]
  21. ZYPREXA [Concomitant]
     Dates: start: 20031001, end: 20031101
  22. AMBIEN [Concomitant]
  23. VISTARIL [Concomitant]
  24. ASPIRIN [Concomitant]
  25. GABAPENTIN [Concomitant]
  26. THIAMINE [Concomitant]
  27. ACETAMINOPHEN [Concomitant]
  28. RISPERDAL [Concomitant]
     Dates: start: 20031001
  29. SYMBYAX [Concomitant]
     Dates: start: 20031001, end: 20031101

REACTIONS (19)
  - ABDOMINAL PAIN [None]
  - ALCOHOL ABUSE [None]
  - ANXIETY [None]
  - ARTHRALGIA [None]
  - BACK PAIN [None]
  - BIPOLAR DISORDER [None]
  - CERVICOBRACHIAL SYNDROME [None]
  - DEPRESSED MOOD [None]
  - DIARRHOEA [None]
  - GAIT DISTURBANCE [None]
  - HYPOAESTHESIA [None]
  - INTERVERTEBRAL DISC DEGENERATION [None]
  - MAJOR DEPRESSION [None]
  - NAUSEA [None]
  - NECK PAIN [None]
  - PANCREATITIS [None]
  - ROAD TRAFFIC ACCIDENT [None]
  - SUICIDAL IDEATION [None]
  - VOMITING [None]
